FAERS Safety Report 6703688-5 (Version None)
Quarter: 2010Q2

REPORT INFORMATION
  Report Type: 
  Country: None (occurrence: None)
  Receive Date: 20100430
  Receipt Date: 20100419
  Transmission Date: 20101027
  Serious: Yes (Hospitalization)
  Sender: FDA-Public Use
  Company Number: CA-JNJFOC-20100405364

PATIENT
  Sex: Female
  Weight: 96 kg

DRUGS (3)
  1. REMICADE [Suspect]
     Indication: CROHN'S DISEASE
     Route: 042
  2. FLAGYL [Concomitant]
     Dosage: X 6 MONTHS
  3. IRON PILLS [Concomitant]

REACTIONS (1)
  - SMALL INTESTINAL RESECTION [None]
